FAERS Safety Report 10756446 (Version 2)
Quarter: 2015Q3

REPORT INFORMATION
  Report Type: Spontaneous
  Country: FR (occurrence: FR)
  Receive Date: 20150202
  Receipt Date: 20150907
  Transmission Date: 20151125
  Serious: Yes (Hospitalization)
  Sender: FDA-Public Use
  Company Number: PHHY2015FR009170

PATIENT
  Age: 64 Year
  Sex: Male

DRUGS (9)
  1. EZETROL [Suspect]
     Active Substance: EZETIMIBE
     Indication: HYPERCHOLESTEROLAEMIA
     Dosage: QD
     Route: 048
  2. ALLOPURINOL. [Concomitant]
     Active Substance: ALLOPURINOL
     Indication: PRODUCT USED FOR UNKNOWN INDICATION
     Dosage: UNK
     Route: 065
  3. METFORMIN [Suspect]
     Active Substance: METFORMIN HYDROCHLORIDE
     Indication: DIABETES MELLITUS
     Dosage: 2 DF (1000MG) QD
     Route: 048
  4. CORGARD [Concomitant]
     Active Substance: NADOLOL
     Indication: PRODUCT USED FOR UNKNOWN INDICATION
     Dosage: UNK
     Route: 065
  5. GLIMEPIRIDE. [Concomitant]
     Active Substance: GLIMEPIRIDE
     Indication: PRODUCT USED FOR UNKNOWN INDICATION
     Dosage: UNK
     Route: 065
  6. RAMIPRIL/HYDROCHLOROTHIAZIDE ZENTIVA [Suspect]
     Active Substance: HYDROCHLOROTHIAZIDE\RAMIPRIL
     Indication: HYPERTENSION
     Dosage: 1 DF (HCTZ 12.5MG, RAMI 5MG) QD
     Route: 048
     Dates: end: 20141225
  7. CLOPIDOGREL [Suspect]
     Active Substance: CLOPIDOGREL BISULFATE
     Indication: CORONARY ARTERY DISEASE
     Dosage: 75 MG, QD
     Route: 048
  8. LOXEN LP [Suspect]
     Active Substance: NICARDIPINE
     Indication: HYPERTENSION
     Dosage: 2 DF (50MG) QD
     Route: 048
  9. RAMIPRIL SANDOZ [Suspect]
     Active Substance: RAMIPRIL
     Indication: HYPERTENSION
     Dosage: 5 MG, QD
     Route: 048
     Dates: end: 20141225

REACTIONS (1)
  - Angioedema [Recovered/Resolved]

NARRATIVE: CASE EVENT DATE: 20141224
